FAERS Safety Report 5464438-6 (Version None)
Quarter: 2007Q3

REPORT INFORMATION
  Report Type: 
  Country: None (occurrence: None)
  Receive Date: 20070921
  Receipt Date: 20070912
  Transmission Date: 20080115
  Serious: Yes (Hospitalization)
  Sender: FDA-Public Use
  Company Number: FR-SANOFI-SYNTHELABO-A02200600202

PATIENT
  Age: 66 Year
  Sex: Male

DRUGS (3)
  1. GAVISCON [Concomitant]
     Indication: GASTROOESOPHAGEAL REFLUX DISEASE
     Dosage: UNK
     Route: 048
  2. OMIX [Concomitant]
     Indication: PROSTATIC ADENOMA
     Route: 048
  3. PLAVIX [Suspect]
     Indication: PERIPHERAL ARTERIAL OCCLUSIVE DISEASE
     Route: 048
     Dates: start: 20041215, end: 20050415

REACTIONS (5)
  - APHTHOUS STOMATITIS [None]
  - ASTHENIA [None]
  - C-REACTIVE PROTEIN INCREASED [None]
  - PYREXIA [None]
  - WEIGHT DECREASED [None]
